FAERS Safety Report 4967532-9 (Version None)
Quarter: 2006Q2

REPORT INFORMATION
  Report Type: 
  Country: None (occurrence: None)
  Receive Date: 20060410
  Receipt Date: 20060406
  Transmission Date: 20061013
  Serious: Yes (Life-Threatening, Hospitalization, Disabling, Other)
  Sender: FDA-Public Use
  Company Number: US-GLAXOSMITHKLINE-A0600760A

PATIENT
  Age: 21 Year
  Sex: Male

DRUGS (3)
  1. PAXIL [Suspect]
     Dosage: 20MG PER DAY
     Route: 048
     Dates: start: 20050601, end: 20050901
  2. PAXIL CR [Concomitant]
  3. PROPRANOLOL [Concomitant]

REACTIONS (3)
  - NAUSEA [None]
  - OVERDOSE [None]
  - SUICIDE ATTEMPT [None]
